FAERS Safety Report 4312046-2 (Version None)
Quarter: 2004Q1

REPORT INFORMATION
  Report Type: 
  Country: None (occurrence: None)
  Receive Date: 20040303
  Receipt Date: 20040220
  Transmission Date: 20041129
  Serious: Yes (Life-Threatening, Hospitalization)
  Sender: FDA-Public Use
  Company Number: 2001080646FR

PATIENT
  Age: 73 Year
  Sex: Female
  Weight: 65 kg

DRUGS (5)
  1. CELEBREX [Suspect]
     Indication: NECK PAIN
     Dosage: 200 MG, QD, ORAL
     Route: 048
     Dates: start: 20011015, end: 20011020
  2. DI-ANTALVIC (DEXTROPROPOXYPHENE HYDROCHLORIDE) [Suspect]
     Indication: NECK PAIN
     Dosage: ORAL
     Route: 048
     Dates: start: 20011015, end: 20011020
  3. LEVOTHYROXINE SODIUM [Concomitant]
  4. QUESTRAN [Concomitant]
  5. DEEDEX [Concomitant]

REACTIONS (19)
  - CYTOLYTIC HEPATITIS [None]
  - DISSEMINATED INTRAVASCULAR COAGULATION [None]
  - DRUG HYPERSENSITIVITY [None]
  - DYSPNOEA [None]
  - EPIDERMOLYSIS [None]
  - ERYTHEMA MULTIFORME [None]
  - FATIGUE [None]
  - GENERAL PHYSICAL HEALTH DETERIORATION [None]
  - HEPATIC FUNCTION ABNORMAL [None]
  - HEPATIC STEATOSIS [None]
  - HEPATOMEGALY [None]
  - JAUNDICE [None]
  - OEDEMA [None]
  - PANCREATIC ENZYMES INCREASED [None]
  - PURPURA [None]
  - PYREXIA [None]
  - RENAL FAILURE ACUTE [None]
  - SHOCK [None]
  - TOXIC EPIDERMAL NECROLYSIS [None]
